FAERS Safety Report 9211029 (Version 1)
Quarter: 2013Q2

REPORT INFORMATION
  Report Type: Spontaneous
  Country: CL (occurrence: CL)
  Receive Date: 20130404
  Receipt Date: 20130404
  Transmission Date: 20140414
  Serious: Yes (Hospitalization)
  Sender: FDA-Public Use
  Company Number: CL-B.I. PHARMACEUTICALS,INC./RIDGEFIELD-2012-RA-00193RA

PATIENT
  Age: 56 Year
  Sex: Male

DRUGS (2)
  1. PRADAXA [Suspect]
     Indication: ATRIAL FIBRILLATION
     Dosage: 220 MG
     Route: 048
     Dates: start: 20111101
  2. CARDIOPLUS/OLMESARTAN/HCTZ [Concomitant]

REACTIONS (1)
  - Thrombocytopenia [Not Recovered/Not Resolved]
